FAERS Safety Report 8212886-3 (Version None)
Quarter: 2012Q1

REPORT INFORMATION
  Report Type: 
  Country: None (occurrence: None)
  Receive Date: 20120315
  Receipt Date: 20120308
  Transmission Date: 20120608
  Serious: Yes (Other)
  Sender: FDA-Public Use
  Company Number: JP-PFIZER INC-2012062676

PATIENT
  Age: 78 Year
  Sex: Female

DRUGS (2)
  1. LANSOPRAZOLE [Concomitant]
     Dosage: 60 MG, UNK
     Route: 041
  2. ZYVOX [Suspect]
     Indication: PNEUMONIA STAPHYLOCOCCAL
     Dosage: 600 MG, 2X/DAY
     Route: 041
     Dates: start: 20120228, end: 20120229

REACTIONS (1)
  - HYPONATRAEMIA [None]
